FAERS Safety Report 13180937 (Version 1)
Quarter: 2017Q1

REPORT INFORMATION
  Report Type: Spontaneous
  Country: US (occurrence: US)
  Receive Date: 20170202
  Receipt Date: 20170202
  Transmission Date: 20170428
  Serious: No
  Sender: FDA-Public Use
  Company Number: US-SMITH AND NEPHEW, INC-2016SMT00295

PATIENT
  Age: 66 Year
  Sex: Female
  Weight: 99.32 kg

DRUGS (10)
  1. SULFAMETHOXAZOLE/TRIMETHOPRIM [Concomitant]
     Active Substance: SULFAMETHOXAZOLE\TRIMETHOPRIM
     Dosage: 1 TABLETS, 2X/DAY
  2. HUMALOG [Concomitant]
     Active Substance: INSULIN LISPRO
     Dosage: 16 U, UNK
  3. LIPITOR [Concomitant]
     Active Substance: ATORVASTATIN CALCIUM
  4. REGRANEX [Suspect]
     Active Substance: BECAPLERMIN
     Indication: DIABETIC FOOT
     Dosage: UNK UNK, 1X/DAY
     Route: 061
     Dates: start: 201602
  5. PLAVIX [Concomitant]
     Active Substance: CLOPIDOGREL BISULFATE
  6. ^GENERIC LEXAPRO^ [Concomitant]
     Dosage: 20 MG, 1X/DAY
     Dates: start: 201603, end: 20160328
  7. LISINOPRIL. [Concomitant]
     Active Substance: LISINOPRIL
  8. SERTRALINE [Concomitant]
     Active Substance: SERTRALINE HYDROCHLORIDE
     Dosage: 100 MG, 1X/DAY
  9. LEVEMIR [Concomitant]
     Active Substance: INSULIN DETEMIR
     Dosage: 75 U, UNK
  10. ^GENERIC LEXAPRO^ [Concomitant]
     Dosage: 10 MG, 1X/DAY
     Dates: start: 201603, end: 201603

REACTIONS (10)
  - Limb discomfort [Recovering/Resolving]
  - Headache [Unknown]
  - Fatigue [Recovering/Resolving]
  - Paraesthesia [Recovering/Resolving]
  - Motor dysfunction [Recovering/Resolving]
  - Muscular weakness [Recovering/Resolving]
  - Crying [Unknown]
  - Multiple sclerosis [Recovering/Resolving]
  - Stress [Unknown]
  - Abdominal pain upper [Unknown]

NARRATIVE: CASE EVENT DATE: 201603
